FAERS Safety Report 6051311-8 (Version None)
Quarter: 2009Q1

REPORT INFORMATION
  Report Type: 
  Country: None (occurrence: None)
  Receive Date: 20090121
  Receipt Date: 20090121
  Transmission Date: 20090719
  Serious: Yes (Hospitalization)
  Sender: FDA-Public Use
  Company Number: None

PATIENT
  Age: 58 Year
  Sex: Female

DRUGS (18)
  1. WARFARIN SODIUM [Suspect]
     Indication: THROMBOSIS PROPHYLAXIS
     Dosage: 10 MG DAILY PO
     Route: 048
     Dates: start: 20081207, end: 20081231
  2. CIPRO [Concomitant]
  3. METFORMIN [Concomitant]
  4. AMARTYL [Concomitant]
  5. JANUVIA [Concomitant]
  6. LANTUS [Concomitant]
  7. ASPIRIN [Suspect]
  8. PROTONIX [Concomitant]
  9. HYDROCHLOROTHIAZIDE [Concomitant]
  10. METOPROLOL [Concomitant]
  11. DIOVAN [Concomitant]
  12. LIPITOR [Concomitant]
  13. NITRO-DUR [Concomitant]
  14. PERCOCET [Concomitant]
  15. OXYCONTIN [Suspect]
  16. CALCITRICOL [Concomitant]
  17. BACLOFEN [Concomitant]
  18. AMBIEN [Concomitant]

REACTIONS (1)
  - HAEMATURIA [None]
